FAERS Safety Report 6738259-8 (Version None)
Quarter: 2010Q2

REPORT INFORMATION
  Report Type: 
  Country: None (occurrence: None)
  Receive Date: 20100524
  Receipt Date: 20100513
  Transmission Date: 20101027
  Serious: Yes (Hospitalization)
  Sender: FDA-Public Use
  Company Number: A0859581A

PATIENT
  Age: 8 Year
  Sex: Female

DRUGS (3)
  1. LAMOTRIGINE [Suspect]
     Dosage: 25MG IN THE MORNING
     Dates: start: 20090901
  2. LAMOTRIGINE [Suspect]
     Dosage: 50MG AT NIGHT
     Route: 048
     Dates: start: 20090901
  3. NO CONCURRENT MEDICATION [Concomitant]

REACTIONS (1)
  - MYOPIA [None]
